FAERS Safety Report 16382612 (Version 1)
Quarter: 2019Q2

REPORT INFORMATION
  Report Type: Spontaneous
  Country: JP (occurrence: JP)
  Receive Date: 20190603
  Receipt Date: 20190603
  Transmission Date: 20190711
  Serious: Yes (Death, Hospitalization)
  Sender: FDA-Public Use
  Company Number: JP-ELI_LILLY_AND_COMPANY-JP201903001675

PATIENT
  Sex: Male
  Weight: 64 kg

DRUGS (18)
  1. NAIXAN [NAPROXEN] [Concomitant]
     Indication: TUMOUR ASSOCIATED FEVER
     Dosage: 100 G, TID
     Dates: start: 20190218, end: 20190325
  2. CODEINE PHOSPHATE [Concomitant]
     Active Substance: CODEINE PHOSPHATE
     Indication: PRODUCTIVE COUGH
  3. CODEINE PHOSPHATE [Concomitant]
     Active Substance: CODEINE PHOSPHATE
     Indication: DYSPNOEA
     Dosage: 0.2 G, TID
     Route: 048
     Dates: start: 20190320, end: 20190324
  4. METHYCOBAL [Concomitant]
     Active Substance: METHYLCOBALAMIN
     Indication: PROPHYLAXIS
     Dosage: 500 UG, BID
     Route: 030
     Dates: start: 20090129, end: 20190129
  5. ALIMTA [Suspect]
     Active Substance: PEMETREXED DISODIUM
     Dosage: 800 MG
     Route: 041
     Dates: start: 20190225, end: 20190225
  6. UNITALC (STERILE TALC) [Concomitant]
     Active Substance: TALC
     Indication: MALIGNANT PLEURAL EFFUSION
     Dosage: 4 G, SINGLE
     Route: 038
     Dates: start: 20190220, end: 20190220
  7. MS CONTIN [Concomitant]
     Active Substance: MORPHINE SULFATE
     Indication: PRODUCTIVE COUGH
     Dosage: 10 MG, BID
     Route: 048
     Dates: start: 20190224, end: 20190328
  8. MS CONTIN [Concomitant]
     Active Substance: MORPHINE SULFATE
     Indication: DYSPNOEA
  9. AVASTIN [Suspect]
     Active Substance: BEVACIZUMAB
     Indication: NON-SMALL CELL LUNG CANCER STAGE IIIA
     Dosage: 900 MG, CYCLICAL
     Route: 041
     Dates: start: 20190225, end: 20190320
  10. BISOPROLOL [Concomitant]
     Active Substance: BISOPROLOL
     Indication: ATRIAL FIBRILLATION
     Dosage: 40 MG, DAILY
     Route: 065
     Dates: start: 20190219, end: 20190404
  11. ALIMTA [Suspect]
     Active Substance: PEMETREXED DISODIUM
     Indication: NON-SMALL CELL LUNG CANCER STAGE IIIA
     Dosage: 800 MG, SINGLE
     Route: 041
     Dates: start: 20190130, end: 20190130
  12. KEYTRUDA [Suspect]
     Active Substance: PEMBROLIZUMAB
     Indication: NON-SMALL CELL LUNG CANCER STAGE IIIA
     Dosage: 200 MG, SINGLE
     Route: 041
     Dates: start: 20190130, end: 20190130
  13. CARBOPLATIN. [Concomitant]
     Active Substance: CARBOPLATIN
     Indication: NON-SMALL CELL LUNG CANCER STAGE IIIA
  14. PANVITAN [ASCORBIC ACID;CALCIUM PANTOTHENATE; [Concomitant]
     Indication: PROPHYLAXIS
     Dosage: 1 G, DAILY
     Route: 048
     Dates: start: 20190129, end: 20190328
  15. ACETAMINOPHEN. [Concomitant]
     Active Substance: ACETAMINOPHEN
     Indication: TUMOUR ASSOCIATED FEVER
     Dosage: 0.5 G, QID
     Route: 048
     Dates: start: 20190218, end: 20190328
  16. NEXIUM [Concomitant]
     Active Substance: ESOMEPRAZOLE MAGNESIUM
     Indication: GASTRIC ULCER
     Dosage: 20 MG, DAILY
     Route: 048
     Dates: start: 20190218, end: 20190328
  17. MIDAZOLAM [Concomitant]
     Active Substance: MIDAZOLAM HYDROCHLORIDE
     Indication: DYSPNOEA
     Dosage: 20 MG, DAILY
     Route: 041
     Dates: start: 20190402, end: 20190404
  18. MIDAZOLAM [Concomitant]
     Active Substance: MIDAZOLAM HYDROCHLORIDE
     Indication: PRODUCTIVE COUGH

REACTIONS (3)
  - Hepatic function abnormal [Recovered/Resolved]
  - Interstitial lung disease [Fatal]
  - Malignant neoplasm progression [Unknown]

NARRATIVE: CASE EVENT DATE: 20190213
